FAERS Safety Report 9250309 (Version 1)
Quarter: 2013Q2

REPORT INFORMATION
  Report Type: Spontaneous
  Country: US (occurrence: None)
  Receive Date: 20130419
  Receipt Date: 20130419
  Transmission Date: 20140414
  Serious: Yes (Other)
  Sender: FDA-Public Use
  Company Number: None

PATIENT
  Age: 24 Year
  Sex: Male
  Weight: 77.11 kg

DRUGS (1)
  1. CIPROFLOXACIN [Suspect]
     Indication: PROSTATITIS
     Route: 048
     Dates: start: 20130314, end: 20130318

REACTIONS (4)
  - Myalgia [None]
  - Abasia [None]
  - Tendon pain [None]
  - Dysstasia [None]
